FAERS Safety Report 8822321 (Version 3)
Quarter: 2018Q4

REPORT INFORMATION
  Report Type: Report from Study
  Country: JP (occurrence: JP)
  Receive Date: 20121003
  Receipt Date: 20181009
  Transmission Date: 20190205
  Serious: Yes (Hospitalization, Disabling, Other)
  Sender: FDA-Public Use
  Company Number: PHHY2012JP012308

PATIENT
  Age: 78 Year
  Sex: Male

DRUGS (19)
  1. TASIGNA [Suspect]
     Active Substance: NILOTINIB
     Dosage: 800 MG, QD
     Route: 048
     Dates: start: 201204, end: 201205
  2. PARIET [Concomitant]
     Active Substance: RABEPRAZOLE SODIUM
     Indication: PROPHYLAXIS
     Dosage: 10 MG, QD
     Route: 048
     Dates: start: 20090622, end: 20090701
  3. PARIET [Concomitant]
     Active Substance: RABEPRAZOLE SODIUM
     Dosage: 10 MG, QD
     Route: 048
     Dates: start: 20090710
  4. TASIGNA [Suspect]
     Active Substance: NILOTINIB
     Dosage: 600 MG, QD
     Route: 048
     Dates: start: 201203
  5. MUCOSTA [Concomitant]
     Active Substance: REBAMIPIDE
     Dosage: 200 MG, QD
     Route: 048
     Dates: start: 20090703, end: 20090706
  6. MUCOSTA [Concomitant]
     Active Substance: REBAMIPIDE
     Dosage: 200 MG, QD
     Route: 048
     Dates: start: 20090710
  7. FUROSEMIDE. [Concomitant]
     Active Substance: FUROSEMIDE
     Dosage: 10 MG, QD
     Route: 048
     Dates: start: 20090703, end: 20090706
  8. REBAMIPIDE [Concomitant]
     Active Substance: REBAMIPIDE
     Indication: PROPHYLAXIS
     Dosage: 200 MG, QD
     Route: 048
  9. TASIGNA [Suspect]
     Active Substance: NILOTINIB
     Dosage: 600 MG, QD
     Route: 048
     Dates: start: 20110614, end: 201111
  10. TASIGNA [Suspect]
     Active Substance: NILOTINIB
     Dosage: 600 MG, QD
     Route: 048
     Dates: start: 201206, end: 201208
  11. PARIET [Concomitant]
     Active Substance: RABEPRAZOLE SODIUM
     Dosage: 20 MG, QD
     Route: 048
     Dates: start: 20090707, end: 20090709
  12. TASIGNA [Suspect]
     Active Substance: NILOTINIB
     Indication: CHRONIC MYELOID LEUKAEMIA
     Dosage: 400 MG, BID
     Route: 048
     Dates: start: 20090623
  13. MUCOSTA [Concomitant]
     Active Substance: REBAMIPIDE
     Indication: PRODUCT USED FOR UNKNOWN INDICATION
     Dosage: 200 MG, QD
     Route: 048
     Dates: start: 20090622, end: 20090701
  14. FUROSEMIDE. [Concomitant]
     Active Substance: FUROSEMIDE
     Dosage: 20 MG, QD
     Route: 048
     Dates: start: 20090707, end: 20090709
  15. MAGMITT [Concomitant]
     Active Substance: MAGNESIUM OXIDE
     Indication: PRODUCT USED FOR UNKNOWN INDICATION
     Dosage: 990 MG, QD
     Route: 048
     Dates: start: 20100405, end: 20100524
  16. FUROSEMIDE. [Concomitant]
     Active Substance: FUROSEMIDE
     Dosage: 10 MG, QD
     Route: 048
     Dates: start: 20090710
  17. PARIET [Concomitant]
     Active Substance: RABEPRAZOLE SODIUM
     Dosage: 10 MG, QD
     Route: 048
     Dates: start: 20090703, end: 20090706
  18. MUCOSTA [Concomitant]
     Active Substance: REBAMIPIDE
     Dosage: 400 MG, QD
     Route: 048
     Dates: start: 20090707, end: 20090709
  19. FUROSEMIDE. [Concomitant]
     Active Substance: FUROSEMIDE
     Indication: PRODUCT USED FOR UNKNOWN INDICATION
     Dosage: 10 MG, QD
     Route: 048
     Dates: start: 20090622, end: 20090701

REACTIONS (15)
  - Diabetes mellitus [Recovering/Resolving]
  - Speech disorder developmental [Not Recovered/Not Resolved]
  - Hyperuricaemia [Recovering/Resolving]
  - Abdominal pain [Recovered/Resolved]
  - Hyperuricaemia [Recovered/Resolved]
  - Hypercholesterolaemia [Recovered/Resolved]
  - Hypertension [Recovering/Resolving]
  - Dysarthria [Not Recovered/Not Resolved]
  - Liver disorder [Not Recovered/Not Resolved]
  - Liver disorder [Recovered/Resolved]
  - Electrocardiogram QT prolonged [Unknown]
  - Thrombocytopenia [Not Recovered/Not Resolved]
  - Cerebral infarction [Recovered/Resolved with Sequelae]
  - Cerebral infarction [Recovered/Resolved with Sequelae]
  - Hemiplegia [Not Recovered/Not Resolved]

NARRATIVE: CASE EVENT DATE: 20090628
